FAERS Safety Report 8053680-6 (Version None)
Quarter: 2012Q1

REPORT INFORMATION
  Report Type: 
  Country: None (occurrence: None)
  Receive Date: 20120118
  Receipt Date: 20120110
  Transmission Date: 20120608
  Serious: Yes (Other)
  Sender: FDA-Public Use
  Company Number: PHHY2012GD002272

PATIENT
  Age: 88 Year
  Sex: Female

DRUGS (8)
  1. ENALAPRIL MALEATE [Concomitant]
     Dosage: UNK UKN, UNK
  2. ALENDRONATE SODIUM [Concomitant]
     Dosage: UNK UKN, UNK
  3. MIRTAZAPINE [Concomitant]
     Indication: AFFECTIVE DISORDER
     Dosage: UNK UKN, UNK
  4. METOPROLOL [Concomitant]
     Dosage: UNK UKN, UNK
  5. ASPIRIN [Concomitant]
     Dosage: UNK UKN, UNK
  6. ANASTROZOLE [Suspect]
     Indication: ADJUVANT THERAPY
     Dosage: UNK UKN, UNK
  7. PRAVASTATIN [Concomitant]
     Dosage: UNK UKN, UNK
  8. CLOPIDOGREL [Concomitant]
     Dosage: UNK UKN, UNK

REACTIONS (1)
  - CHOLESTASIS [None]
